FAERS Safety Report 9125265 (Version 2)
Quarter: 2013Q1

REPORT INFORMATION
  Report Type: Spontaneous
  Country: AR (occurrence: AR)
  Receive Date: 20130227
  Receipt Date: 20130308
  Transmission Date: 20140127
  Serious: Yes (Hospitalization)
  Sender: FDA-Public Use
  Company Number: AR-BRISTOL-MYERS SQUIBB COMPANY-17399676

PATIENT
  Age: 70 Year
  Sex: Male
  Weight: 80 kg

DRUGS (1)
  1. YERVOY [Suspect]
     Indication: MALIGNANT MELANOMA
     Dosage: FINISHED DATE: 21-DEC-2012
     Route: 042
     Dates: start: 20121015

REACTIONS (14)
  - Infected neoplasm [Unknown]
  - Confusional state [Unknown]
  - Diarrhoea [Unknown]
  - Vomiting [Unknown]
  - Vision blurred [Unknown]
  - Rash [Unknown]
  - Pruritus [Unknown]
  - Fatigue [Unknown]
  - Hypoaesthesia [Unknown]
  - Dehydration [Unknown]
  - Delirium [Unknown]
  - Pain in extremity [Unknown]
  - Somnolence [Unknown]
  - Eating disorder [Unknown]
